FAERS Safety Report 5369525-9 (Version None)
Quarter: 2007Q2

REPORT INFORMATION
  Report Type: 
  Country: None (occurrence: None)
  Receive Date: 20070625
  Receipt Date: 20070615
  Transmission Date: 20071010
  Serious: Yes (Disabling)
  Sender: FDA-Public Use
  Company Number: B0472472A

PATIENT
  Age: 51 Year
  Sex: Male
  Weight: 104 kg

DRUGS (12)
  1. AVANDIA [Suspect]
     Indication: DRUG USE FOR UNKNOWN INDICATION
     Dosage: 8MG PER DAY
     Route: 048
     Dates: start: 20060701, end: 20070101
  2. SULFONYLUREA [Concomitant]
  3. STATINS [Concomitant]
  4. ACE INHIBITOR [Concomitant]
  5. ASPIRIN [Concomitant]
  6. LIPIDIL [Concomitant]
  7. NOTEN [Concomitant]
  8. NATRILIX SR [Concomitant]
  9. DIABEX [Concomitant]
  10. CARDIZEM CD [Concomitant]
  11. PRESSIN [Concomitant]
     Dosage: 1MG TWICE PER DAY
     Dates: start: 20061001, end: 20061201
  12. NOVOMIX [Concomitant]
     Dates: start: 20060201

REACTIONS (9)
  - BLOOD ALBUMIN INCREASED [None]
  - BLOOD CHLORIDE DECREASED [None]
  - BLOOD CHOLESTEROL INCREASED [None]
  - BLOOD GLUCOSE INCREASED [None]
  - BLOOD UREA INCREASED [None]
  - DYSPNOEA [None]
  - GAMMA-GLUTAMYLTRANSFERASE INCREASED [None]
  - PULMONARY OEDEMA [None]
  - WEIGHT INCREASED [None]
